FAERS Safety Report 9948530 (Version 2)
Quarter: 2014Q1

REPORT INFORMATION
  Report Type: Spontaneous
  Country: US (occurrence: US)
  Receive Date: 20140304
  Receipt Date: 20140306
  Transmission Date: 20141002
  Serious: Yes (Life-Threatening, Hospitalization, Other)
  Sender: FDA-Public Use
  Company Number: US-ROCHE-1358499

PATIENT
  Age: 70 Year
  Sex: Female
  Weight: 104.4 kg

DRUGS (9)
  1. AVASTIN [Suspect]
     Indication: LUNG CANCER METASTATIC
     Route: 041
     Dates: start: 20121129, end: 20131212
  2. AVASTIN [Suspect]
     Indication: METASTASES TO ADRENALS
  3. COREG [Concomitant]
     Route: 048
  4. LISINOPRIL [Concomitant]
  5. INSULIN [Concomitant]
  6. NOVOLOG [Concomitant]
     Dosage: BEFORE BREAKFAST AND BEFORE DINNER
     Route: 058
  7. METFORMIN [Concomitant]
     Route: 048
  8. LASIX [Concomitant]
     Route: 048
  9. COUMADIN [Concomitant]
     Route: 048

REACTIONS (4)
  - Cardiac failure congestive [Recovered/Resolved with Sequelae]
  - Cardiomyopathy [Recovered/Resolved with Sequelae]
  - Systolic dysfunction [Unknown]
  - Ejection fraction decreased [Unknown]
